FAERS Safety Report 26047826 (Version 1)
Quarter: 2025Q4

REPORT INFORMATION
  Report Type: Report from Study
  Country: BR (occurrence: BR)
  Receive Date: 20251114
  Receipt Date: 20251114
  Transmission Date: 20260118
  Serious: Yes (Hospitalization)
  Sender: GILEAD
  Company Number: BR-GILEAD-2025-0734820

PATIENT
  Age: 69 Year
  Sex: Male

DRUGS (1)
  1. AXICABTAGENE CILOLEUCEL [Suspect]
     Active Substance: AXICABTAGENE CILOLEUCEL
     Indication: Diffuse large B-cell lymphoma
     Dosage: UNK
     Route: 065
     Dates: start: 20251020, end: 20251020

REACTIONS (3)
  - Speech disorder [Unknown]
  - Amnesia [Unknown]
  - Illness [Unknown]
